FAERS Safety Report 6568296-8 (Version None)
Quarter: 2010Q1

REPORT INFORMATION
  Report Type: 
  Country: None (occurrence: None)
  Receive Date: 20100203
  Receipt Date: 20100125
  Transmission Date: 20100710
  Serious: Yes (Hospitalization, Disabling)
  Sender: FDA-Public Use
  Company Number: US-BAYER-200943619NA

PATIENT
  Age: 64 Year
  Sex: Female
  Weight: 49 kg

DRUGS (4)
  1. AVELOX [Suspect]
     Indication: RESPIRATORY TRACT INFECTION
     Dosage: 2 NIGHTS,TOOK 4 DOSES
     Route: 048
     Dates: start: 20091218, end: 20091222
  2. LEVOTHYROXINE SODIUM [Concomitant]
     Dosage: AS USED: 50 ?G
     Route: 048
  3. IBUPROFEN [Concomitant]
     Indication: SPINAL COLUMN STENOSIS
     Dosage: AS USED: 800 MG
  4. HYDROCODONE WITH APAP [Concomitant]
     Indication: SPINAL COLUMN STENOSIS
     Dosage: AS USED: 7.5 MG

REACTIONS (6)
  - ABASIA [None]
  - ARTHRALGIA [None]
  - MUSCULOSKELETAL DISCOMFORT [None]
  - PAIN IN EXTREMITY [None]
  - SPINAL COLUMN STENOSIS [None]
  - STOMATITIS [None]
